FAERS Safety Report 10218106 (Version 1)
Quarter: 2014Q2

REPORT INFORMATION
  Report Type: Spontaneous
  Country: US (occurrence: US)
  Receive Date: 20140605
  Receipt Date: 20140605
  Transmission Date: 20141212
  Serious: No
  Sender: FDA-Public Use
  Company Number: US-BIOGENIDEC-2014BI047398

PATIENT
  Age: 71 Year
  Sex: Female

DRUGS (7)
  1. TECFIDERA [Suspect]
     Indication: MULTIPLE SCLEROSIS
     Route: 048
     Dates: start: 20140128
  2. AMLODIPINE [Concomitant]
  3. BESY-BENAZEPRIL HCL [Concomitant]
  4. ASPIR-LOW [Concomitant]
  5. COREG [Concomitant]
  6. LOSARTAN POTASSIUM [Concomitant]
  7. TYLENOL [Concomitant]

REACTIONS (1)
  - Dental caries [Unknown]
